FAERS Safety Report 14509590 (Version 1)
Quarter: 2018Q1

REPORT INFORMATION
  Report Type: Spontaneous
  Country: US (occurrence: US)
  Receive Date: 20180209
  Receipt Date: 20180209
  Transmission Date: 20180509
  Serious: No
  Sender: FDA-Public Use
  Company Number: US-ASTRAZENECA-2018SE15659

PATIENT
  Sex: Female

DRUGS (2)
  1. NEXIUM 24HR [Suspect]
     Active Substance: ESOMEPRAZOLE MAGNESIUM
     Dosage: 0.5 DOSAGE FORM SINGLE (TOOK 1/2 PILL WITH COFFEE)
     Route: 048
     Dates: start: 20180201, end: 20180201
  2. NEXIUM 24HR [Suspect]
     Active Substance: ESOMEPRAZOLE MAGNESIUM
     Route: 048

REACTIONS (5)
  - Malaise [Unknown]
  - Diarrhoea [Unknown]
  - Wrong technique in product usage process [Unknown]
  - Incorrect dose administered [Unknown]
  - Expired product administered [Unknown]

NARRATIVE: CASE EVENT DATE: 20180201
